FAERS Safety Report 25943462 (Version 1)
Quarter: 2025Q4

REPORT INFORMATION
  Report Type: Spontaneous
  Country: US (occurrence: US)
  Receive Date: 20251021
  Receipt Date: 20251021
  Transmission Date: 20260117
  Serious: No
  Sender: ELI LILLY AND COMPANY
  Company Number: US-ELI_LILLY_AND_COMPANY-US202510007931

PATIENT
  Sex: Female

DRUGS (1)
  1. ZEPBOUND [Suspect]
     Active Substance: TIRZEPATIDE
     Indication: Product used for unknown indication
     Dosage: UNK UNK, UNKNOWN
     Route: 065

REACTIONS (8)
  - Headache [Unknown]
  - Tendonitis [Unknown]
  - Carpal tunnel syndrome [Unknown]
  - Restless legs syndrome [Recovered/Resolved]
  - Feeling jittery [Recovered/Resolved]
  - Alopecia [Unknown]
  - Vomiting [Unknown]
  - Fatigue [Unknown]
